FAERS Safety Report 7475836-3 (Version None)
Quarter: 2011Q2

REPORT INFORMATION
  Report Type: 
  Country: None (occurrence: None)
  Receive Date: 20110512
  Receipt Date: 20110509
  Transmission Date: 20111010
  Serious: Yes (Death, Other)
  Sender: FDA-Public Use
  Company Number: JP-AMGEN-JPNCT2011024471

PATIENT
  Age: 61 Year
  Sex: Male
  Weight: 63 kg

DRUGS (10)
  1. CORTICOSTEROIDS [Concomitant]
     Indication: PROPHYLAXIS
     Dosage: UNK
  2. MIYA-BM [Concomitant]
     Dosage: UNK
     Route: 048
  3. FLUOROURACIL [Suspect]
     Indication: COLORECTAL CANCER
     Route: 040
     Dates: start: 20100831, end: 20101223
  4. PROTECADIN [Concomitant]
     Dosage: UNK
     Route: 048
  5. NORVASC [Concomitant]
     Dosage: UNK
     Route: 048
  6. MICARDIS [Concomitant]
     Route: 048
  7. CALCIUM LEVOFOLINATE [Concomitant]
     Indication: COLORECTAL CANCER
     Route: 041
     Dates: start: 20100831, end: 20101223
  8. IRINOTECAN HCL [Suspect]
     Indication: COLORECTAL CANCER
     Route: 041
     Dates: start: 20100831, end: 20101223
  9. FLUOROURACIL [Suspect]
     Route: 041
     Dates: start: 20100831, end: 20101223
  10. VECTIBIX [Suspect]
     Indication: COLORECTAL CANCER
     Dosage: 6 MG/KG, Q2WK
     Route: 041
     Dates: start: 20100831

REACTIONS (7)
  - MALAISE [None]
  - STOMATITIS [None]
  - COLORECTAL CANCER [None]
  - WEIGHT DECREASED [None]
  - DIARRHOEA [None]
  - DRY SKIN [None]
  - DECREASED APPETITE [None]
